FAERS Safety Report 12125939 (Version 1)
Quarter: 2016Q1

REPORT INFORMATION
  Report Type: Spontaneous
  Country: PT (occurrence: PT)
  Receive Date: 20160229
  Receipt Date: 20160229
  Transmission Date: 20160526
  Serious: Yes (Death, Life-Threatening, Hospitalization, Disabling)
  Sender: FDA-Public Use
  Company Number: PT-ROCHE-1712629

PATIENT
  Age: 72 Year
  Sex: Female

DRUGS (6)
  1. CHLORAMBUCIL [Concomitant]
     Active Substance: CHLORAMBUCIL
  2. IDELALISIB [Concomitant]
     Active Substance: IDELALISIB
     Route: 065
     Dates: start: 201510
  3. MABTHERA [Suspect]
     Active Substance: RITUXIMAB
     Indication: CHRONIC LYMPHOCYTIC LEUKAEMIA
     Route: 042
     Dates: start: 20121022, end: 201512
  4. BENDAMUSTINA [Concomitant]
     Active Substance: BENDAMUSTINE
     Route: 065
  5. FLUDARABINE [Concomitant]
     Active Substance: FLUDARABINE PHOSPHATE
     Route: 065
  6. CICLOFOSFAMIDA [Concomitant]
     Active Substance: CYCLOPHOSPHAMIDE
     Route: 065

REACTIONS (3)
  - Apathy [Fatal]
  - Progressive multifocal leukoencephalopathy [Fatal]
  - Facial nerve disorder [Fatal]

NARRATIVE: CASE EVENT DATE: 201512
